FAERS Safety Report 20704295 (Version 1)
Quarter: 2022Q2

REPORT INFORMATION
  Report Type: Spontaneous
  Country: US (occurrence: None)
  Receive Date: 20220412
  Receipt Date: 20220412
  Transmission Date: 20220721
  Serious: No
  Sender: FDA-Public Use
  Company Number: None

PATIENT
  Sex: Male

DRUGS (1)
  1. STELARA [Suspect]
     Active Substance: USTEKINUMAB
     Indication: Colitis ulcerative
     Dosage: OTHER FREQUENCY : Q 8 WEEKS;?
     Route: 058
     Dates: start: 20211104

REACTIONS (2)
  - Wrong technique in device usage process [None]
  - Therapy interrupted [None]
